FAERS Safety Report 21012744 (Version 1)
Quarter: 2022Q2

REPORT INFORMATION
  Report Type: Spontaneous
  Country: US (occurrence: US)
  Receive Date: 20220627
  Receipt Date: 20220627
  Transmission Date: 20220720
  Serious: No
  Sender: FDA-Public Use
  Company Number: US-SA-SAC20220617000447

PATIENT
  Age: 29 Year
  Sex: Male

DRUGS (20)
  1. DUPIXENT [Suspect]
     Active Substance: DUPILUMAB
     Indication: Asthma
     Dosage: 300 MG, QOW
     Route: 058
     Dates: start: 20210408
  2. ATROVENT [Suspect]
     Active Substance: IPRATROPIUM BROMIDE
  3. PREDNISONE [Concomitant]
     Active Substance: PREDNISONE
  4. XOPENEX [Concomitant]
     Active Substance: LEVALBUTEROL HYDROCHLORIDE
     Dosage: 1.25MG/3ML VIAL-NEB
  5. KETOCONAZOLE [Concomitant]
     Active Substance: KETOCONAZOLE
  6. MUPIROCIN [Concomitant]
     Active Substance: MUPIROCIN
  7. CULTURELLE [Concomitant]
     Active Substance: LACTOBACILLUS RHAMNOSUS
  8. SINGULAIR [Concomitant]
     Active Substance: MONTELUKAST SODIUM
  9. VITAMIN D2 [Concomitant]
     Active Substance: ERGOCALCIFEROL
  10. LEVOTHYROXINE [Concomitant]
     Active Substance: LEVOTHYROXINE
  11. CROMOLYN SODIUM [Concomitant]
     Active Substance: CROMOLYN SODIUM
  12. PULMICORT TURBUHALER [Concomitant]
     Active Substance: BUDESONIDE
     Dosage: 1 MG/2 ML AMPUL-NEB
  13. IPRATROPIUM BROMIDE [Concomitant]
     Active Substance: IPRATROPIUM BROMIDE
  14. DYMISTA [Concomitant]
     Active Substance: AZELASTINE HYDROCHLORIDE\FLUTICASONE PROPIONATE
     Dosage: 137-50 MCG SPRAY/PUMP
  15. ZONEGRAN [Concomitant]
     Active Substance: ZONISAMIDE
  16. VIMPAT [Concomitant]
     Active Substance: LACOSAMIDE
  17. CLARITHROMYCIN [Concomitant]
     Active Substance: CLARITHROMYCIN
  18. ZYRTEC [Concomitant]
     Active Substance: CETIRIZINE HYDROCHLORIDE
  19. SODIUM CHLORIDE [Concomitant]
     Active Substance: SODIUM CHLORIDE
  20. FLAXSEED [Concomitant]
     Active Substance: FLAX SEED
     Dosage: 1300-670MG

REACTIONS (3)
  - Dysphagia [Not Recovered/Not Resolved]
  - Cough [Not Recovered/Not Resolved]
  - Ocular hyperaemia [Not Recovered/Not Resolved]
